FAERS Safety Report 17242501 (Version 4)
Quarter: 2020Q2

REPORT INFORMATION
  Report Type: Spontaneous
  Country: US (occurrence: US)
  Receive Date: 20200107
  Receipt Date: 20200402
  Transmission Date: 20200713
  Serious: Yes (Hospitalization, Other)
  Sender: FDA-Public Use
  Company Number: US-SA-2020SA000464

PATIENT
  Age: 78 Year
  Sex: Female

DRUGS (1)
  1. PRALUENT [Suspect]
     Active Substance: ALIROCUMAB
     Indication: BLOOD CHOLESTEROL ABNORMAL
     Dosage: 75 MG, QOW
     Dates: start: 20191215, end: 20200318

REACTIONS (9)
  - Malaise [Unknown]
  - Tinnitus [Unknown]
  - Auditory disorder [Unknown]
  - Ear pain [Unknown]
  - Dizziness [Unknown]
  - Malaise [Unknown]
  - Deafness unilateral [Unknown]
  - Injection site pain [Recovered/Resolved]
  - Device difficult to use [Recovered/Resolved]

NARRATIVE: CASE EVENT DATE: 20191229
